FAERS Safety Report 6442703 (Version 11)
Quarter: 2013Q2

REPORT INFORMATION
  Report Type: Spontaneous
  Country: DE (occurrence: DE)
  Receive Date: 20071016
  Receipt Date: 20130510
  Transmission Date: 20140414
  Serious: Yes (Disabling, Other)
  Sender: FDA-Public Use
  Company Number: PHNU2007DE03386

PATIENT
  Sex: Female

DRUGS (12)
  1. CO-DIOVAN [Suspect]
     Indication: HYPERTENSION
     Dosage: 1 DF (160MG VALS/25MG HCT), UNK
     Dates: end: 200808
  2. CO-DIOVAN [Suspect]
     Dosage: 1 DF (160MG VALS/12.5 MG HCT), UNK
  3. AARANE N [Concomitant]
     Dosage: 10 ML, PRN
  4. CARMEN [Concomitant]
     Dosage: 10 MG, QD
  5. DEXA POLYSPECTRAN N [Concomitant]
     Dosage: 5 MG, PRN
  6. DICLAC [Concomitant]
     Dosage: 75 MG, QD
  7. DOXEPIN [Concomitant]
     Dosage: 25 MG, QD
  8. GABAPENTIN [Concomitant]
     Dosage: 1 TO 2 DF, PRN
  9. SOSTRIL [Concomitant]
     Dosage: 1 DF, QD
  10. TELFAST [Concomitant]
     Dosage: 180 MG, QD
  11. PREDNI H [Concomitant]
     Dosage: 10 MG, QD
  12. VIANI [Concomitant]
     Dosage: 1 DF, BID

REACTIONS (24)
  - Muscle atrophy [Not Recovered/Not Resolved]
  - Muscular dystrophy [Not Recovered/Not Resolved]
  - Muscular weakness [Unknown]
  - Muscle twitching [Unknown]
  - Limb discomfort [Unknown]
  - Weight decreased [Unknown]
  - Gait disturbance [Unknown]
  - Myalgia [Unknown]
  - Muscle spasms [Unknown]
  - Trendelenburg^s symptom [Unknown]
  - Mitral valve incompetence [Unknown]
  - Ventricular extrasystoles [Unknown]
  - Conjunctivitis infective [Recovering/Resolving]
  - Arthropathy [Unknown]
  - Pharyngeal oedema [Unknown]
  - Dysphagia [Unknown]
  - Glycogen storage disease type II [Unknown]
  - Frequent bowel movements [Recovered/Resolved]
  - Snoring [Unknown]
  - Morton^s neuralgia [Unknown]
  - Pain in extremity [Unknown]
  - Fatigue [Unknown]
  - Headache [Unknown]
  - Pollakiuria [Unknown]
